FAERS Safety Report 6843369-0 (Version None)
Quarter: 2010Q3

REPORT INFORMATION
  Report Type: 
  Country: None (occurrence: None)
  Receive Date: 20100712
  Receipt Date: 20100706
  Transmission Date: 20110219
  Serious: Yes (Other)
  Sender: FDA-Public Use
  Company Number: DSA_43450_2010

PATIENT
  Sex: Female

DRUGS (9)
  1. XENAZINE [Suspect]
     Indication: PRODUCT USED FOR UNKNOWN INDICATION
     Dosage: DF ORAL, (25 MG TID ORAL)
     Route: 048
     Dates: start: 20090101, end: 20100531
  2. XENAZINE [Suspect]
     Indication: PRODUCT USED FOR UNKNOWN INDICATION
     Dosage: DF ORAL, (25 MG TID ORAL)
     Route: 048
     Dates: start: 20100601
  3. CLONAZEPAM [Concomitant]
  4. NAMENDA [Concomitant]
  5. LAMOTRIGINE [Concomitant]
  6. PROVIGIL [Concomitant]
  7. AMBIEN [Concomitant]
  8. ASPIRIN [Concomitant]
  9. VITAMIN B6 [Concomitant]

REACTIONS (4)
  - CONDITION AGGRAVATED [None]
  - DEPRESSION [None]
  - DYSKINESIA [None]
  - HYPERVENTILATION [None]
